FAERS Safety Report 10728682 (Version 1)
Quarter: 2015Q1

REPORT INFORMATION
  Report Type: Spontaneous
  Country: US (occurrence: None)
  Receive Date: 20150120
  Receipt Date: 20150120
  Transmission Date: 20150721
  Serious: Yes (Other)
  Sender: FDA-Public Use
  Company Number: None

PATIENT
  Age: 25 Year
  Sex: Female
  Weight: 122 kg

DRUGS (1)
  1. FINACEA [Suspect]
     Active Substance: AZELAIC ACID
     Indication: ROSACEA
     Dosage: 3GRAMS TWICE DAILY APPLIED TO A SURFACE USUALLY THE SKIN
     Dates: start: 20150112, end: 20150116

REACTIONS (4)
  - Application site pain [None]
  - Application site erythema [None]
  - Application site irritation [None]
  - Application site dryness [None]

NARRATIVE: CASE EVENT DATE: 20150116
